FAERS Safety Report 7375760-0 (Version None)
Quarter: 2011Q1

REPORT INFORMATION
  Report Type: 
  Country: None (occurrence: None)
  Receive Date: 20110325
  Receipt Date: 20110314
  Transmission Date: 20110831
  Serious: Yes (Hospitalization)
  Sender: FDA-Public Use
  Company Number: FR-ELI_LILLY_AND_COMPANY-FR201102001229

PATIENT
  Sex: Female
  Weight: 63 kg

DRUGS (5)
  1. FORTEO [Suspect]
     Indication: OSTEOPOROTIC FRACTURE
     Dosage: 20 UG, DAILY (1/D)
     Route: 058
     Dates: start: 20100422, end: 20110101
  2. ISOPTIN [Concomitant]
  3. LEVOTHYROX [Concomitant]
     Dosage: 150 UG, DAILY (1/D)
  4. IRBESARTAN [Concomitant]
     Dosage: 300 MG, DAILY (1/D)
  5. SECALIP [Concomitant]
     Dosage: 300 MG, DAILY (1/D)

REACTIONS (2)
  - TACHYCARDIA [None]
  - DYSPNOEA [None]
